FAERS Safety Report 9510303 (Version 1)
Quarter: 2013Q3

REPORT INFORMATION
  Report Type: Spontaneous
  Country: US (occurrence: US)
  Receive Date: 20130909
  Receipt Date: 20130909
  Transmission Date: 20140515
  Serious: Yes (Hospitalization)
  Sender: FDA-Public Use
  Company Number: US-BRISTOL-MYERS SQUIBB COMPANY-17474164

PATIENT
  Age: 48 Year
  Sex: Female

DRUGS (6)
  1. ABILIFY [Suspect]
     Indication: BIPOLAR II DISORDER
  2. ABILIFY [Suspect]
     Indication: DEPRESSION
  3. ATIVAN [Concomitant]
  4. AMBIEN [Concomitant]
  5. CYMBALTA [Concomitant]
  6. ELAVIL [Concomitant]

REACTIONS (1)
  - Extrapyramidal disorder [Unknown]
